FAERS Safety Report 25774876 (Version 1)
Quarter: 2025Q3

REPORT INFORMATION
  Report Type: Spontaneous
  Country: US (occurrence: US)
  Receive Date: 20250908
  Receipt Date: 20250908
  Transmission Date: 20251021
  Serious: No
  Sender: INCYTE
  Company Number: US-EVENT-004101

PATIENT
  Age: 60 Year
  Weight: 41 kg

DRUGS (5)
  1. NIKTIMVO [Suspect]
     Active Substance: AXATILIMAB-CSFR
     Indication: Chronic graft versus host disease in lung
     Route: 065
  2. NIKTIMVO [Suspect]
     Active Substance: AXATILIMAB-CSFR
     Indication: Chronic graft versus host disease in liver
     Route: 065
  3. FLUTICASONE [Concomitant]
     Active Substance: FLUTICASONE
     Indication: Product used for unknown indication
     Route: 065
  4. AZITHROMYCIN [Concomitant]
     Active Substance: AZITHROMYCIN
     Indication: Product used for unknown indication
     Route: 065
  5. MONTELUKAST [Concomitant]
     Active Substance: MONTELUKAST
     Indication: Product used for unknown indication
     Route: 065

REACTIONS (2)
  - Diarrhoea [Recovering/Resolving]
  - Gastrointestinal hypermotility [Unknown]
